FAERS Safety Report 13135033 (Version 1)
Quarter: 2017Q1

REPORT INFORMATION
  Report Type: Spontaneous
  Country: US (occurrence: US)
  Receive Date: 20170120
  Receipt Date: 20170120
  Transmission Date: 20170428
  Serious: Yes (Other)
  Sender: FDA-Public Use
  Company Number: US-TEVA-732077USA

PATIENT
  Sex: Male

DRUGS (1)
  1. ETOPOSIDE. [Suspect]
     Active Substance: ETOPOSIDE
     Indication: LUNG NEOPLASM MALIGNANT
     Route: 042

REACTIONS (3)
  - Back pain [Unknown]
  - Pruritus [Unknown]
  - Chest pain [Unknown]

NARRATIVE: CASE EVENT DATE: 20161227
